FAERS Safety Report 23881249 (Version 2)
Quarter: 2024Q2

REPORT INFORMATION
  Report Type: Spontaneous
  Country: CN (occurrence: CN)
  Receive Date: 20240521
  Receipt Date: 20240531
  Transmission Date: 20240716
  Serious: Yes (Other)
  Sender: FDA-Public Use
  Company Number: CN-SUN PHARMACEUTICAL INDUSTRIES LTD-2024R1-446927

PATIENT
  Age: 56 Year
  Sex: Female

DRUGS (3)
  1. CAPECITABINE [Suspect]
     Active Substance: CAPECITABINE
     Indication: Chemotherapy
     Dosage: 1 GRAM PER SQUARE METRE
     Route: 065
     Dates: start: 2018
  2. PACLITAXEL [Suspect]
     Active Substance: PACLITAXEL
     Indication: Chemotherapy
     Dosage: 125 MILLIGRAM/SQ. METER
     Route: 065
     Dates: start: 2018
  3. LETROZOLE [Concomitant]
     Active Substance: LETROZOLE
     Indication: Adjuvant therapy
     Dosage: 2.5 MILLIGRAM, QD
     Route: 065

REACTIONS (1)
  - Neoplasm progression [Unknown]
